FAERS Safety Report 11783743 (Version 1)
Quarter: 2015Q4

REPORT INFORMATION
  Report Type: Spontaneous
  Country: GB (occurrence: GB)
  Receive Date: 20151127
  Receipt Date: 20151127
  Transmission Date: 20160305
  Serious: Yes (Other)
  Sender: FDA-Public Use
  Company Number: GB-HOSPIRA-3091928

PATIENT

DRUGS (10)
  1. IRINOTECAN HYDROCHLORIDE. [Suspect]
     Active Substance: IRINOTECAN HYDROCHLORIDE
     Indication: ADENOCARCINOMA PANCREAS
     Dosage: 130-135 MG/M^2, OVER 46 HOURS EVERY 14 DAYS
     Route: 042
     Dates: start: 201107, end: 201405
  2. ONDANSETRON [Concomitant]
     Active Substance: ONDANSETRON
     Indication: ANTIEMETIC SUPPORTIVE CARE
     Dosage: ON DAY 1 OF EACH CYCLE
  3. LOPERAMIDE [Concomitant]
     Active Substance: LOPERAMIDE
     Indication: DIARRHOEA
  4. APREPITANT. [Concomitant]
     Active Substance: APREPITANT
     Indication: ANTIEMETIC SUPPORTIVE CARE
  5. OXALIPLATIN. [Suspect]
     Active Substance: OXALIPLATIN
     Indication: ADENOCARCINOMA PANCREAS
     Dosage: OVER 46 HOURS EVERY 14 DAYS
     Route: 042
     Dates: start: 201107, end: 201405
  6. DOMPERIDONE [Concomitant]
     Active Substance: DOMPERIDONE
     Indication: ANTIEMETIC SUPPORTIVE CARE
  7. FLUOROURACIL. [Suspect]
     Active Substance: FLUOROURACIL
     Indication: ADENOCARCINOMA PANCREAS
     Dosage: OVER 46 HOURS EVERY 14 DAYS
     Route: 041
     Dates: start: 201107, end: 201405
  8. CALCIUM FOLINATE [Suspect]
     Active Substance: LEUCOVORIN CALCIUM
     Indication: ADENOCARCINOMA PANCREAS
     Dosage: OVER 46 HOURS EVERY 14 DAYS
     Route: 042
     Dates: start: 201107, end: 201405
  9. DEXAMETHASONE. [Concomitant]
     Active Substance: DEXAMETHASONE
     Indication: ANTIEMETIC SUPPORTIVE CARE
     Dosage: ON DAY 1 OF EACH CYCLE
  10. FILGRASTIM [Suspect]
     Active Substance: FILGRASTIM
     Indication: ADENOCARCINOMA PANCREAS
     Dosage: ON 14-DAY CYCLE
     Route: 058
     Dates: start: 201107, end: 201405

REACTIONS (1)
  - Febrile neutropenia [Unknown]
